FAERS Safety Report 10121268 (Version 2)
Quarter: 2014Q4

REPORT INFORMATION
  Report Type: Other
  Country: US (occurrence: US)
  Receive Date: 20140425
  Receipt Date: 20141123
  Transmission Date: 20150528
  Serious: Yes (Hospitalization, Other)
  Sender: FDA-Public Use
  Company Number: US-GSKPPD-2014GSK008290

PATIENT
  Age: 72 Year
  Sex: Female

DRUGS (9)
  1. IMDUR [Concomitant]
     Active Substance: ISOSORBIDE MONONITRATE
  2. WELCHOL [Concomitant]
     Active Substance: COLESEVELAM HYDROCHLORIDE
  3. ZOCOR [Concomitant]
     Active Substance: SIMVASTATIN
  4. SOTALOL. [Concomitant]
     Active Substance: SOTALOL
  5. ASPIRIN. [Concomitant]
     Active Substance: ASPIRIN
  6. TICLID [Concomitant]
     Active Substance: TICLOPIDINE HYDROCHLORIDE
  7. AVANDIA [Suspect]
     Active Substance: ROSIGLITAZONE MALEATE
     Indication: DIABETES MELLITUS
     Route: 048
  8. DIOVAN [Concomitant]
     Active Substance: VALSARTAN
  9. LOZOL [Concomitant]
     Active Substance: INDAPAMIDE

REACTIONS (1)
  - Coronary arterial stent insertion [Recovered/Resolved]

NARRATIVE: CASE EVENT DATE: 20100923
